FAERS Safety Report 24538250 (Version 1)
Quarter: 2024Q4

REPORT INFORMATION
  Report Type: Spontaneous
  Country: BR (occurrence: BR)
  Receive Date: 20241023
  Receipt Date: 20241023
  Transmission Date: 20250115
  Serious: Yes (Other)
  Sender: ABBVIE
  Company Number: BR-ABBOTT-2024A-1390213

PATIENT
  Sex: Female
  Weight: 33 kg

DRUGS (1)
  1. DEPAKOTE [Suspect]
     Active Substance: DIVALPROEX SODIUM
     Indication: Epilepsy
     Dosage: IN THE MORNING UNTIL 9:00 3 CAPSULES, AT LUNCH ANOTHER 3 CAPSULES, AT NIGHT ANOTHER 2 CAPSULES. IN T
     Route: 048

REACTIONS (6)
  - Arrhythmia [Unknown]
  - Product residue present [Unknown]
  - Product quality issue [Unknown]
  - Seizure [Unknown]
  - Wrong technique in product usage process [Unknown]
  - Product use issue [Unknown]
